FAERS Safety Report 5076886-7 (Version None)
Quarter: 2006Q3

REPORT INFORMATION
  Report Type: 
  Country: None (occurrence: None)
  Receive Date: 20060810
  Receipt Date: 20060801
  Transmission Date: 20061208
  Serious: Yes (Death, Hospitalization)
  Sender: FDA-Public Use
  Company Number: FR-JNJFOC-20060800686

PATIENT
  Age: 85 Year
  Sex: Female

DRUGS (9)
  1. RISPERDAL [Suspect]
     Indication: NEUROSIS
     Route: 048
  2. DEPAKENE [Suspect]
     Indication: EPILEPSY
     Route: 048
  3. LEXOMIL [Suspect]
     Indication: DRUG USE FOR UNKNOWN INDICATION
     Route: 048
  4. ZESTRIL [Suspect]
     Indication: HYPERTENSION
     Route: 048
  5. PREVISCAN [Suspect]
     Indication: ATRIAL FLUTTER
     Route: 048
  6. PREVISCAN [Suspect]
     Indication: ATRIAL FIBRILLATION
     Route: 048
  7. DIGOXIN [Suspect]
     Indication: ATRIAL TACHYCARDIA
     Route: 048
  8. CARDENSIEL [Concomitant]
  9. AUGMENTIN [Concomitant]

REACTIONS (1)
  - DEATH [None]
